FAERS Safety Report 4964444-1 (Version None)
Quarter: 2006Q2

REPORT INFORMATION
  Report Type: 
  Country: None (occurrence: None)
  Receive Date: 20060406
  Receipt Date: 20060327
  Transmission Date: 20061013
  Serious: Yes (Death, Other)
  Sender: FDA-Public Use
  Company Number: ES-BRISTOL-MYERS SQUIBB COMPANY-13335229

PATIENT
  Age: 50 Year
  Sex: Female
  Weight: 58 kg

DRUGS (7)
  1. ENDOXAN [Suspect]
     Indication: DRUG USE FOR UNKNOWN INDICATION
     Route: 042
     Dates: start: 20051129, end: 20051129
  2. VINCRISTINE [Suspect]
     Indication: DRUG USE FOR UNKNOWN INDICATION
     Route: 042
     Dates: start: 20051129, end: 20051129
  3. MABTHERA [Suspect]
     Indication: DRUG USE FOR UNKNOWN INDICATION
     Route: 042
     Dates: start: 20051129, end: 20051129
  4. ADRIAMYCIN PFS [Suspect]
     Indication: DRUG USE FOR UNKNOWN INDICATION
     Route: 042
     Dates: start: 20051129, end: 20051129
  5. WATER FOR INJECTION, STERILE [Concomitant]
  6. PREDNISONE [Concomitant]
     Route: 048
     Dates: start: 20051129, end: 20051203
  7. ALLOPURINOL [Concomitant]
     Route: 048
     Dates: start: 20051129, end: 20051213

REACTIONS (2)
  - CEREBRAL HAEMORRHAGE [None]
  - DEATH [None]
